FAERS Safety Report 13172008 (Version 3)
Quarter: 2017Q2

REPORT INFORMATION
  Report Type: Spontaneous
  Country: US (occurrence: US)
  Receive Date: 20170201
  Receipt Date: 20170609
  Transmission Date: 20170830
  Serious: No
  Sender: FDA-Public Use
  Company Number: US-PFIZER INC-2017042297

PATIENT
  Age: 62 Year
  Sex: Female
  Weight: 61 kg

DRUGS (22)
  1. VALIUM [Concomitant]
     Active Substance: DIAZEPAM
     Indication: MUSCLE SPASMS
     Dosage: 5 MG, AS NEEDED
  2. BUPROPION. [Concomitant]
     Active Substance: BUPROPION
     Indication: DEPRESSION
     Dosage: 300 MG, 1X/DAY (Q AM)
  3. FORMULA 303 [Concomitant]
     Active Substance: MAGNESIUM\PASSIFLORA INCARNATA FLOWER\VALERIAN
     Indication: SLEEP DISORDER
     Dosage: 3 DF, DAILY (AT NIGHT)
     Dates: start: 2015
  4. WELLBUTRIN XL [Concomitant]
     Active Substance: BUPROPION HYDROCHLORIDE
     Indication: DEPRESSION
     Dosage: 300 MG, 1X/DAY (IN THE MORNING)
     Dates: start: 2002
  5. MELATONIN [Concomitant]
     Active Substance: MELATONIN
     Indication: SLEEP DISORDER
     Dosage: 0.3 MG, 1X/DAY (AT 6PM)
  6. TRAMADOL. [Concomitant]
     Active Substance: TRAMADOL
     Indication: NECK PAIN
     Dosage: 50 MG, AS NEEDED
     Dates: start: 2013
  7. LIOTHYRONINE [Concomitant]
     Active Substance: LIOTHYRONINE
     Indication: THYROID DISORDER
     Dosage: 5 UG, 1X/DAY (MORNING)
     Dates: start: 2012
  8. FISH OIL [Concomitant]
     Active Substance: FISH OIL
     Indication: PROPHYLAXIS
  9. ASTEPRO [Concomitant]
     Active Substance: AZELASTINE HYDROCHLORIDE
     Indication: HYPERSENSITIVITY
     Dosage: 2 DF, AS NEEDED (IN EACH NOSTRIL)
     Route: 045
  10. SODIUM CHLORIDE. [Concomitant]
     Active Substance: SODIUM CHLORIDE
     Indication: CORNEAL OEDEMA
     Dosage: 1 DF TO BOTH EYES, 2X/DAY
     Dates: start: 2012
  11. SKULLCAP /01183801/ [Concomitant]
     Indication: SLEEP DISORDER
     Dosage: 120 DF, 1X/DAY (BEFORE BED)
     Dates: start: 2014
  12. LEVOTHYROXINE. [Concomitant]
     Active Substance: LEVOTHYROXINE
     Indication: THYROID DISORDER
     Dosage: 75 UG, 1X/DAY (EVERY AM)
     Dates: start: 2012
  13. ESTRADIOL. [Concomitant]
     Active Substance: ESTRADIOL
     Indication: OESTROGEN REPLACEMENT THERAPY
     Dosage: 0.0375 MG OR UG, 2X/WEEK ROTATE BETWEEN ABDOMEN AND THIGHS
  14. D3 +K2 [Concomitant]
     Indication: SUPPLEMENTATION THERAPY
     Dosage: 5000 IU, DAILY
     Dates: start: 2002
  15. PRISTIQ EXTENDED-RELEASE [Suspect]
     Active Substance: DESVENLAFAXINE SUCCINATE
     Indication: DEPRESSION
     Dosage: 50 MG, 1X/DAY (QD)
     Route: 048
     Dates: start: 20170110, end: 20170401
  16. ALLEGRA [Concomitant]
     Active Substance: FEXOFENADINE HYDROCHLORIDE
     Indication: HYPERSENSITIVITY
     Dosage: 180 MG, 1X/DAY (MORNING)
     Dates: start: 2015
  17. PROGESTIN [Concomitant]
     Active Substance: PROGESTERONE
     Indication: HORMONE REPLACEMENT THERAPY
     Dosage: 100 MG, 1X/DAY (AT NIGHT)
  18. VITAMIN B-COMPLEX /00228301/ [Concomitant]
     Indication: ASTHENIA
     Dosage: 1 DF, 1X/DAY (MORNING)
     Dates: start: 2007
  19. FISH OIL [Concomitant]
     Active Substance: FISH OIL
     Indication: SUPPLEMENTATION THERAPY
     Dosage: 1 DF(TEASPOON), DAILY
     Dates: start: 2002
  20. DIGESTIVE ENZYMES [Concomitant]
     Active Substance: UNSPECIFIED INGREDIENT
     Indication: PROPHYLAXIS
     Dosage: 2 DF, 3X/DAY (WITH MEALS)
     Dates: start: 2002
  21. IFLORA [Concomitant]
     Indication: PROBIOTIC THERAPY
     Dosage: 2 DF, 1X/DAY (EVENING)
  22. RESTORIL [Concomitant]
     Active Substance: TEMAZEPAM
     Indication: SLEEP DISORDER
     Dosage: 15 MG, 1X/DAY

REACTIONS (2)
  - Anorgasmia [Recovered/Resolved]
  - Withdrawal syndrome [Unknown]

NARRATIVE: CASE EVENT DATE: 20170112
